FAERS Safety Report 13590221 (Version 8)
Quarter: 2023Q2

REPORT INFORMATION
  Report Type: Spontaneous
  Country: US (occurrence: None)
  Receive Date: 20170530
  Receipt Date: 20230630
  Transmission Date: 20230721
  Serious: Yes (Life-Threatening, Other)
  Sender: FDA-Public Use
  Company Number: 2017SE55121

PATIENT
  Age: 29740 Day
  Sex: Female
  Weight: 84.4 kg

DRUGS (46)
  1. NEXIUM [Suspect]
     Active Substance: ESOMEPRAZOLE MAGNESIUM
     Indication: Gastric pH decreased
     Dosage: 40.0MG UNKNOWN
     Route: 048
     Dates: start: 2009, end: 2014
  2. NEXIUM [Suspect]
     Active Substance: ESOMEPRAZOLE MAGNESIUM
     Indication: Gastric pH decreased
     Dosage: 40.0MG UNKNOWN
     Route: 048
     Dates: start: 20090803
  3. PRILOSEC [Suspect]
     Active Substance: OMEPRAZOLE MAGNESIUM
     Route: 048
  4. PRILOSEC [Suspect]
     Active Substance: OMEPRAZOLE MAGNESIUM
     Dosage: OMEPRAZOLE(GENERIC)
     Route: 048
     Dates: start: 20141022
  5. PRILOSEC [Suspect]
     Active Substance: OMEPRAZOLE MAGNESIUM
     Dosage: GENERIC
     Dates: start: 20160111
  6. PROTONIX [Suspect]
     Active Substance: PANTOPRAZOLE SODIUM
  7. PROTONIX [Suspect]
     Active Substance: PANTOPRAZOLE SODIUM
     Dates: start: 20160411
  8. NIFEDIPINE [Concomitant]
     Active Substance: NIFEDIPINE
  9. GEMFIBROZIL [Concomitant]
     Active Substance: GEMFIBROZIL
  10. CLONIDINE [Concomitant]
     Active Substance: CLONIDINE
     Route: 065
  11. ATORVASTATIN [Concomitant]
     Active Substance: ATORVASTATIN
     Indication: Blood cholesterol abnormal
     Route: 065
     Dates: start: 20060421, end: 20060727
  12. CLOPIDOGREL [Concomitant]
     Active Substance: CLOPIDOGREL BISULFATE
     Route: 065
  13. MECLIZINE [Concomitant]
     Active Substance: MECLIZINE HYDROCHLORIDE
     Indication: Dizziness
     Route: 065
     Dates: start: 20060215, end: 20060307
  14. ROLAIDS [Concomitant]
     Active Substance: CALCIUM CARBONATE\MAGNESIUM HYDROXIDE
     Route: 065
  15. MYLANTA [Concomitant]
     Active Substance: ALUMINUM HYDROXIDE\DIMETHICONE\MAGNESIUM HYDROXIDE
     Route: 065
  16. NAPROXEN [Concomitant]
     Active Substance: NAPROXEN
     Indication: Inflammatory pain
     Route: 065
     Dates: start: 20060316, end: 20060416
  17. BENAZEPRIL HYDROCHLORIDE [Concomitant]
     Active Substance: BENAZEPRIL HYDROCHLORIDE
     Indication: Blood pressure abnormal
     Route: 065
     Dates: start: 20060123, end: 20060321
  18. ATENOLOL [Concomitant]
     Active Substance: ATENOLOL
     Indication: Blood pressure abnormal
     Route: 065
     Dates: start: 20060221, end: 20060619
  19. EVISTA [Concomitant]
     Active Substance: RALOXIFENE HYDROCHLORIDE
     Route: 065
     Dates: start: 20060131, end: 20060327
  20. DICLOFENAC SODIUM [Concomitant]
     Active Substance: DICLOFENAC SODIUM
     Indication: Inflammatory pain
     Route: 065
     Dates: start: 20060329, end: 20060419
  21. METHYLPREDNISOLONE [Concomitant]
     Active Substance: METHYLPREDNISOLONE
     Route: 065
     Dates: start: 20060329, end: 20060404
  22. CYCLOBENZAPRINE [Concomitant]
     Active Substance: CYCLOBENZAPRINE
     Indication: Muscle spasms
     Route: 065
     Dates: start: 20060330, end: 20060419
  23. NORVASC [Concomitant]
     Active Substance: AMLODIPINE BESYLATE
     Indication: Blood pressure abnormal
     Route: 065
     Dates: start: 20060406, end: 20060712
  24. MOBIC [Concomitant]
     Active Substance: MELOXICAM
     Indication: Inflammatory pain
     Route: 065
     Dates: start: 20060406, end: 20060413
  25. ANTARA [Concomitant]
     Active Substance: FENOFIBRATE
     Route: 065
     Dates: start: 20060406, end: 20060712
  26. VALSARTAN/ HYDROCHLORTHIAZIDE [Concomitant]
     Indication: Dehydration
     Route: 065
     Dates: start: 20060503, end: 20060815
  27. UREA LOTION [Concomitant]
     Route: 065
     Dates: start: 20061013, end: 20061112
  28. TRIAMCINOLONE [Concomitant]
     Active Substance: TRIAMCINOLONE
     Route: 065
     Dates: start: 20061023, end: 20061112
  29. LEXAPRO [Concomitant]
     Active Substance: ESCITALOPRAM OXALATE
     Route: 065
     Dates: start: 20070327, end: 20080411
  30. DOXYCYCLINE HYCLATE [Concomitant]
     Active Substance: DOXYCYCLINE HYCLATE
     Indication: Infection
     Route: 065
     Dates: start: 20080110, end: 20080210
  31. PHENYLEPHRINE [Concomitant]
     Active Substance: PHENYLEPHRINE HYDROCHLORIDE
     Indication: Cough
     Route: 065
     Dates: start: 20080110, end: 20080210
  32. PREDNISONE [Concomitant]
     Active Substance: PREDNISONE
     Route: 065
     Dates: start: 20080110, end: 20080118
  33. VIGAMOX [Concomitant]
     Active Substance: MOXIFLOXACIN HYDROCHLORIDE
     Indication: Bioptic eye surgery
     Route: 065
     Dates: start: 20080124, end: 20080203
  34. CIPROFLOXACIN HYDROCHLORIDE [Concomitant]
     Active Substance: CIPROFLOXACIN HYDROCHLORIDE
     Indication: Infection
     Route: 065
     Dates: start: 20080319, end: 20080419
  35. PRAVASTATIN SODIUM [Concomitant]
     Active Substance: PRAVASTATIN SODIUM
     Indication: Blood cholesterol abnormal
     Route: 065
     Dates: start: 20080418, end: 20081011
  36. PROPOXYPHEN-APAP [Concomitant]
     Indication: Pain
     Dosage: 100-600 MG
     Route: 065
     Dates: start: 20080513, end: 20080613
  37. GABAPENTIN [Concomitant]
     Active Substance: GABAPENTIN
     Route: 065
     Dates: start: 20080709, end: 20080809
  38. ACETAMINOPHEN\TRAMADOL [Concomitant]
     Active Substance: ACETAMINOPHEN\TRAMADOL
     Indication: Pain
     Route: 065
     Dates: start: 20080717, end: 20080914
  39. METOPROLOL TARTRATE [Concomitant]
     Active Substance: METOPROLOL TARTRATE
     Dates: start: 20141006
  40. ALENDRONATE [Concomitant]
     Active Substance: ALENDRONATE SODIUM
     Dates: start: 20141017
  41. ALPRAZOLAM [Concomitant]
     Active Substance: ALPRAZOLAM
     Dates: start: 20150526
  42. CALCITRIOL [Concomitant]
     Active Substance: CALCITRIOL
     Dates: start: 20150817
  43. SULFAMETHOXAZOLE\TRIMETHOPRIM [Concomitant]
     Active Substance: SULFAMETHOXAZOLE\TRIMETHOPRIM
     Dates: start: 20160330
  44. METOPROLOL SUCCINATE [Concomitant]
     Active Substance: METOPROLOL SUCCINATE
     Dates: start: 20160421
  45. CEFDINIR [Concomitant]
     Active Substance: CEFDINIR
     Dates: start: 20170510
  46. NITROFURANTOIN [Concomitant]
     Active Substance: NITROFURANTOIN
     Dates: start: 20171205

REACTIONS (10)
  - Renal impairment [Unknown]
  - Chronic kidney disease [Not Recovered/Not Resolved]
  - Acute kidney injury [Unknown]
  - Renal failure [Unknown]
  - End stage renal disease [Unknown]
  - Nephrogenic anaemia [Unknown]
  - Hyperparathyroidism secondary [Unknown]
  - Nephropathy [Unknown]
  - Tubulointerstitial nephritis [Unknown]
  - Rebound acid hypersecretion [Unknown]

NARRATIVE: CASE EVENT DATE: 20181026
